FAERS Safety Report 8435860 (Version 9)
Quarter: 2014Q1

REPORT INFORMATION
  Report Type: Report from Study
  Country: HU (occurrence: HU)
  Receive Date: 20120301
  Receipt Date: 20140128
  Transmission Date: 20141002
  Serious: Yes (Hospitalization)
  Sender: FDA-Public Use
  Company Number: HU-ROCHE-1038842

PATIENT
  Age: 66 Year
  Sex: Female
  Weight: 67 kg

DRUGS (10)
  1. PERTUZUMAB [Suspect]
     Indication: BREAST CANCER METASTATIC
     Dosage: LOADING DOSE
     Route: 042
     Dates: start: 20111006
  2. PERTUZUMAB [Suspect]
     Dosage: MAINTAINANCE DOSE?LAST DOSE PRIOR TO SAE: 19/JAN/2012?DRUG TEMPORARILY INTERRUPTED ON 08/FEB/2012
     Route: 042
     Dates: end: 20120208
  3. PERTUZUMAB [Suspect]
     Dosage: RESTARTED
     Route: 042
     Dates: start: 20120228
  4. CAPECITABINE [Suspect]
     Indication: BREAST CANCER METASTATIC
     Dosage: LAST DOSE PRIOR TO SAE: 02/FEB/2012?DRUG TEMPORARILY INTERRUPTED ON 08/FEB/2012
     Route: 048
     Dates: start: 20111006, end: 20120208
  5. CAPECITABINE [Suspect]
     Route: 048
     Dates: start: 20120228
  6. TRASTUZUMAB [Suspect]
     Indication: BREAST CANCER METASTATIC
     Dosage: LOADING DOSE
     Route: 042
     Dates: start: 20111006
  7. TRASTUZUMAB [Suspect]
     Dosage: MAINTAINANCE DOSE (6MG/KG)?LAST DOSE PRIOR TO SAE: 19/JAN/2012?DRUG TEMPORARILY INTERRUPTED ON 08/FE
     Route: 042
     Dates: end: 20120208
  8. TRASTUZUMAB [Suspect]
     Dosage: RESTARTED
     Route: 042
     Dates: start: 20120228
  9. AMLODIPINE [Concomitant]
     Route: 065
     Dates: start: 2008
  10. HYDROCHLOROTHIAZIDE/RAMIPRIL [Concomitant]
     Route: 065
     Dates: start: 2008

REACTIONS (1)
  - Pulmonary embolism [Recovered/Resolved]
